FAERS Safety Report 9272026 (Version 3)
Quarter: 2013Q4

REPORT INFORMATION
  Report Type: Spontaneous
  Country: US (occurrence: US)
  Receive Date: 20130506
  Receipt Date: 20131018
  Transmission Date: 20140711
  Serious: Yes (Hospitalization, Disabling)
  Sender: FDA-Public Use
  Company Number: US-ASTRAZENECA-2013SE27462

PATIENT
  Age: 50 Year
  Sex: Female
  Weight: 70.3 kg

DRUGS (17)
  1. NEXIUM [Suspect]
     Indication: ABDOMINAL PAIN UPPER
     Dosage: TWO TIMES A DAY
     Route: 048
     Dates: start: 1995, end: 2012
  2. NEXIUM [Suspect]
     Indication: GASTRIC DISORDER
     Dosage: TWO TIMES A DAY
     Route: 048
     Dates: start: 1995, end: 2012
  3. NEXIUM [Suspect]
     Indication: ABDOMINAL PAIN UPPER
     Route: 048
     Dates: start: 20061205
  4. NEXIUM [Suspect]
     Indication: GASTRIC DISORDER
     Route: 048
     Dates: start: 20061205
  5. PREVACID [Concomitant]
  6. PEPCID [Concomitant]
  7. ALKA SELTZER [Concomitant]
     Dates: start: 2009, end: 2011
  8. BENICAR HCT [Concomitant]
  9. FAMOTIDINE [Concomitant]
  10. SIMVASTATIN [Concomitant]
  11. SENAGUD [Concomitant]
  12. TRAMADOL/ACETAMINPHEN [Concomitant]
     Dosage: 37.5-325
  13. TEMAZEPAM [Concomitant]
  14. MELOXICAM [Concomitant]
  15. DONEPEZIL [Concomitant]
  16. MIRTAZAPINE [Concomitant]
  17. SEROQUEL [Concomitant]

REACTIONS (10)
  - Cervical vertebral fracture [Unknown]
  - Neck injury [Unknown]
  - Back injury [Unknown]
  - Bipolar disorder [Unknown]
  - Appendix disorder [Unknown]
  - Depression [Unknown]
  - Osteoporosis [Unknown]
  - Bone disorder [Unknown]
  - Multiple fractures [Unknown]
  - Pain in extremity [Unknown]
